FAERS Safety Report 18714061 (Version 2)
Quarter: 2021Q1

REPORT INFORMATION
  Report Type: Spontaneous
  Country: US (occurrence: US)
  Receive Date: 20210107
  Receipt Date: 20210128
  Transmission Date: 20210419
  Serious: No
  Sender: FDA-Public Use
  Company Number: US-TOLMAR, INC.-20US024738

PATIENT
  Age: 8 Year
  Sex: Female
  Weight: 31.75 kg

DRUGS (2)
  1. FENSOLVI [Suspect]
     Active Substance: LEUPROLIDE ACETATE
     Indication: PRECOCIOUS PUBERTY
     Dosage: UNK
     Route: 065
     Dates: start: 20201120
  2. LUPRON [Concomitant]
     Active Substance: LEUPROLIDE ACETATE
     Indication: PRODUCT USED FOR UNKNOWN INDICATION
     Dosage: UNK
     Route: 065

REACTIONS (3)
  - Skin wound [Recovering/Resolving]
  - Injection site pruritus [Recovering/Resolving]
  - Injection site infection [Recovering/Resolving]

NARRATIVE: CASE EVENT DATE: 20201123
